FAERS Safety Report 4968662-8 (Version None)
Quarter: 2006Q2

REPORT INFORMATION
  Report Type: 
  Country: None (occurrence: None)
  Receive Date: 20060411
  Receipt Date: 20060329
  Transmission Date: 20061013
  Serious: Yes (Other)
  Sender: FDA-Public Use
  Company Number: CZ-BRISTOL-MYERS SQUIBB COMPANY-13329735

PATIENT
  Age: 75 Year
  Sex: Male

DRUGS (2)
  1. BLEOMYCIN [Suspect]
     Indication: MALIGNANT MELANOMA
     Route: 030
     Dates: start: 20060306, end: 20060306
  2. MINDIAB [Concomitant]

REACTIONS (1)
  - GRAND MAL CONVULSION [None]
